FAERS Safety Report 13545021 (Version 2)
Quarter: 2017Q3

REPORT INFORMATION
  Report Type: Report from Study
  Country: AT (occurrence: AT)
  Receive Date: 20170515
  Receipt Date: 20170706
  Transmission Date: 20171127
  Serious: Yes (Other)
  Sender: FDA-Public Use
  Company Number: AT-BAYER-2017-089753

PATIENT
  Age: 33 Year
  Sex: Female
  Weight: 80 kg

DRUGS (1)
  1. JAYDESS [Suspect]
     Active Substance: LEVONORGESTREL
     Indication: CONTRACEPTION
     Dosage: 14 MCG/24HR, CONT
     Route: 015
     Dates: start: 20160125, end: 20170326

REACTIONS (8)
  - Ectopic pregnancy with contraceptive device [None]
  - Hydrosalpinx [None]
  - Drug ineffective [None]
  - Acute abdomen [None]
  - Abdominal pain lower [None]
  - Cyst [None]
  - Ruptured ectopic pregnancy [None]
  - Dysmenorrhoea [None]

NARRATIVE: CASE EVENT DATE: 2017
